FAERS Safety Report 10128096 (Version 1)
Quarter: 2014Q2

REPORT INFORMATION
  Report Type: Spontaneous
  Country: SE (occurrence: SE)
  Receive Date: 20140428
  Receipt Date: 20140428
  Transmission Date: 20141212
  Serious: Yes (Other)
  Sender: FDA-Public Use
  Company Number: SE-ROCHE-1385282

PATIENT
  Sex: Female

DRUGS (1)
  1. MABTHERA [Suspect]
     Indication: GRANULOMATOSIS WITH POLYANGIITIS
     Route: 042

REACTIONS (9)
  - Infusion related reaction [Unknown]
  - Pyrexia [Unknown]
  - Chills [Unknown]
  - Arthralgia [Unknown]
  - Malaise [Unknown]
  - Drug administration error [Unknown]
  - Asthenia [Unknown]
  - Tremor [Unknown]
  - Off label use [Unknown]
